FAERS Safety Report 8265152-4 (Version None)
Quarter: 2012Q2

REPORT INFORMATION
  Report Type: 
  Country: None (occurrence: None)
  Receive Date: 20120406
  Receipt Date: 20120323
  Transmission Date: 20120825
  Serious: Yes (Other)
  Sender: FDA-Public Use
  Company Number: US-ROCHE-1053423

PATIENT
  Sex: Female

DRUGS (14)
  1. ASPIRIN [Concomitant]
  2. LEVOXYL [Concomitant]
  3. LOSARTAN POTASSIUM AND HYDROCHLOROTHIAZIDE [Concomitant]
     Indication: HYPERTENSION
     Dates: end: 20120316
  4. FISH OIL [Concomitant]
  5. HYDROCODONE BITARTRATE AND ACETAMINOPHEN [Concomitant]
  6. PEGFILGRASTIM [Suspect]
     Indication: PRODUCT USED FOR UNKNOWN INDICATION
  7. EMLA [Concomitant]
  8. OMEPRAZOLE [Concomitant]
  9. HERCEPTIN [Suspect]
     Indication: BREAST CANCER
     Route: 042
     Dates: start: 20120302
  10. DOCETAXEL [Suspect]
     Indication: PRODUCT USED FOR UNKNOWN INDICATION
  11. TRIAMCINOLONE ACETONIDE [Concomitant]
  12. AMBIEN [Concomitant]
     Route: 048
  13. CALCIUM CARBONATE [Concomitant]
  14. CRESTOR [Concomitant]

REACTIONS (6)
  - ARTHRALGIA [None]
  - WEIGHT DECREASED [None]
  - DYSGEUSIA [None]
  - WEIGHT INCREASED [None]
  - DECREASED APPETITE [None]
  - BLOOD PRESSURE DECREASED [None]
